FAERS Safety Report 20954795 (Version 1)
Quarter: 2022Q2

REPORT INFORMATION
  Report Type: Spontaneous
  Country: CN (occurrence: CN)
  Receive Date: 20220614
  Receipt Date: 20220614
  Transmission Date: 20220721
  Serious: Yes (Other)
  Sender: FDA-Public Use
  Company Number: CN-ASTELLAS PHARMA EUROPE B.V.-2022US020798

PATIENT
  Age: 58 Year
  Sex: Male
  Weight: 50 kg

DRUGS (2)
  1. HARNAL [Suspect]
     Active Substance: TAMSULOSIN HYDROCHLORIDE
     Indication: Prostatic disorder
     Dosage: 0.2 MG, QD
     Route: 048
     Dates: start: 20220511, end: 20220511
  2. DEXAMETHASONE [Concomitant]
     Active Substance: DEXAMETHASONE
     Indication: Oxygen therapy
     Dosage: 5 MG
     Route: 042

REACTIONS (4)
  - Asphyxia [Recovering/Resolving]
  - Chest discomfort [Recovering/Resolving]
  - Hypoaesthesia oral [Recovering/Resolving]
  - Hypoaesthesia oral [Recovering/Resolving]

NARRATIVE: CASE EVENT DATE: 20220511
